FAERS Safety Report 19482175 (Version 1)
Quarter: 2021Q3

REPORT INFORMATION
  Report Type: Spontaneous
  Country: MY (occurrence: MY)
  Receive Date: 20210701
  Receipt Date: 20210701
  Transmission Date: 20211014
  Serious: Yes (Death)
  Sender: FDA-Public Use
  Company Number: MY-ALVOGEN-2021-ALVOGEN-117166

PATIENT
  Age: 26 Year
  Sex: Male

DRUGS (2)
  1. CLINDAMYCIN. [Suspect]
     Active Substance: CLINDAMYCIN
     Indication: PSEUDOMONAS INFECTION
     Dosage: 900 MG, 3X/DAY
  2. IMIPENEM AND CILASTATIN [Suspect]
     Active Substance: CILASTATIN SODIUM\IMIPENEM
     Indication: PSEUDOMONAS INFECTION
     Dosage: 500 MG EVERY 6 H
     Route: 042

REACTIONS (2)
  - Drug ineffective [Fatal]
  - Incorrect dose administered [Fatal]
